FAERS Safety Report 19714987 (Version 1)
Quarter: 2021Q3

REPORT INFORMATION
  Report Type: Spontaneous
  Country: US (occurrence: US)
  Receive Date: 20210818
  Receipt Date: 20210818
  Transmission Date: 20211014
  Serious: No
  Sender: FDA-Public Use
  Company Number: US-BIOVITRUM-2021US7547

PATIENT
  Sex: Male
  Weight: 10 kg

DRUGS (2)
  1. SYNAGIS [Suspect]
     Active Substance: PALIVIZUMAB
     Indication: PRODUCT USED FOR UNKNOWN INDICATION
     Dosage: SYNAGIS 100MG/1ML VL LIQUID
     Route: 030
  2. TOBRAMYCIN SULF [Concomitant]
     Active Substance: TOBRAMYCIN SULFATE

REACTIONS (1)
  - Bacterial disease carrier [Unknown]
